FAERS Safety Report 7021027-X (Version None)
Quarter: 2010Q3

REPORT INFORMATION
  Report Type: 
  Country: None (occurrence: None)
  Receive Date: 20100929
  Receipt Date: 20100920
  Transmission Date: 20110219
  Serious: Yes (Hospitalization)
  Sender: FDA-Public Use
  Company Number: GR-ABBOTT-10P-066-0671818-00

PATIENT
  Age: 75 Year
  Sex: Female

DRUGS (1)
  1. KLARICID [Suspect]
     Indication: RESPIRATORY TRACT INFECTION
     Route: 048
     Dates: start: 20100903, end: 20100905

REACTIONS (1)
  - RENAL FAILURE ACUTE [None]
